FAERS Safety Report 23172295 (Version 1)
Quarter: 2023Q4

REPORT INFORMATION
  Report Type: Spontaneous
  Country: FR (occurrence: FR)
  Receive Date: 20231110
  Receipt Date: 20231110
  Transmission Date: 20240110
  Serious: Yes (Other)
  Sender: FDA-Public Use
  Company Number: FR-SANDOZ-SDZ2023FR001288

PATIENT
  Age: 58 Year
  Sex: Female

DRUGS (3)
  1. PAROXETINE [Suspect]
     Active Substance: PAROXETINE
     Indication: Depression
     Dosage: 50 MG, UNK
     Route: 048
     Dates: start: 20230420
  2. RISPERIDONE [Suspect]
     Active Substance: RISPERIDONE
     Indication: Pseudostrabismus
     Dosage: 1 DOSAGE FORM
     Route: 048
     Dates: start: 20230420
  3. BROMAZEPAM [Suspect]
     Active Substance: BROMAZEPAM
     Indication: Anxiety
     Dosage: 1 DOSAGE FORM
     Route: 048
     Dates: start: 20230420

REACTIONS (2)
  - Wrong patient received product [Unknown]
  - Somnolence [Recovered/Resolved]

NARRATIVE: CASE EVENT DATE: 20230420
